FAERS Safety Report 24808367 (Version 4)
Quarter: 2025Q2

REPORT INFORMATION
  Report Type: Report from Study
  Country: IL (occurrence: IL)
  Receive Date: 20250106
  Receipt Date: 20250611
  Transmission Date: 20250716
  Serious: Yes (Hospitalization, Other)
  Sender: ABBVIE
  Company Number: IL-ABBVIE-6069029

PATIENT
  Age: 78 Year
  Sex: Male

DRUGS (1)
  1. FOSCARBIDOPA\FOSLEVODOPA [Suspect]
     Active Substance: FOSCARBIDOPA\FOSLEVODOPA
     Indication: Parkinson^s disease
     Route: 058
     Dates: start: 20241229

REACTIONS (8)
  - Fall [Unknown]
  - Chest injury [Unknown]
  - Cognitive disorder [Unknown]
  - Subarachnoid haemorrhage [Unknown]
  - Musculoskeletal chest pain [Unknown]
  - Fall [Unknown]
  - Limb injury [Unknown]
  - Shoulder fracture [Unknown]

NARRATIVE: CASE EVENT DATE: 20241230
